FAERS Safety Report 24240988 (Version 1)
Quarter: 2024Q3

REPORT INFORMATION
  Report Type: Spontaneous
  Country: US (occurrence: US)
  Receive Date: 20240823
  Receipt Date: 20240823
  Transmission Date: 20241016
  Serious: Yes (Other)
  Sender: BRISTOL MYERS SQUIBB
  Company Number: US-BRISTOL-MYERS SQUIBB COMPANY-2024-129041

PATIENT
  Sex: Female

DRUGS (2)
  1. SPRYCEL [Suspect]
     Active Substance: DASATINIB
     Indication: Chronic myelomonocytic leukaemia
     Route: 048
     Dates: start: 20240712, end: 20240808
  2. INSULIN NOS [Concomitant]
     Active Substance: INSULIN NOS
     Indication: Product used for unknown indication

REACTIONS (8)
  - Headache [Recovered/Resolved]
  - Nausea [Unknown]
  - Dyspnoea [Unknown]
  - Heart valve incompetence [Unknown]
  - Erythema [Unknown]
  - Pulmonary oedema [Unknown]
  - Oxygen saturation decreased [Recovering/Resolving]
  - Off label use [Unknown]

NARRATIVE: CASE EVENT DATE: 20240713
